FAERS Safety Report 21109604 (Version 1)
Quarter: 2022Q3

REPORT INFORMATION
  Report Type: Spontaneous
  Country: ES (occurrence: ES)
  Receive Date: 20220721
  Receipt Date: 20220721
  Transmission Date: 20221027
  Serious: Yes (Life-Threatening, Hospitalization)
  Sender: FDA-Public Use
  Company Number: ES-SUN PHARMACEUTICAL INDUSTRIES LTD-2022RR-345429

PATIENT
  Age: 85 Year
  Sex: Female

DRUGS (6)
  1. SERTRALINE [Suspect]
     Active Substance: SERTRALINE HYDROCHLORIDE
     Indication: Depression
     Dosage: 25 MILLIGRAM, DAILY
     Route: 065
     Dates: start: 20220428
  2. DOXAZOSIN MESYLATE [Concomitant]
     Active Substance: DOXAZOSIN MESYLATE
     Indication: Hypertension
     Dosage: 4 MILLIGRAM, DAILY
     Route: 065
     Dates: start: 200908
  3. ENALAPRIL MALEATE [Concomitant]
     Active Substance: ENALAPRIL MALEATE
     Indication: Hypertension
     Dosage: 10 MILLIGRAM, DAILY
     Route: 065
     Dates: start: 201803
  4. JANUVIA 50 MG COMPRIMIDOS RECUBIERTOS CON PELICULA 28 comprimidos [Concomitant]
     Indication: Diabetes mellitus
     Dosage: 50 MILLIGRAM, DAILY
     Route: 065
     Dates: start: 202003
  5. LORMETAZEPAM [Concomitant]
     Active Substance: LORMETAZEPAM
     Indication: Insomnia
     Dosage: 4 MILLIGRAM, DAILY
     Route: 065
     Dates: start: 201504
  6. REPAGLINIDE [Concomitant]
     Active Substance: REPAGLINIDE
     Indication: Diabetes mellitus
     Dosage: 3 MILLIGRAM, DAILY
     Route: 065
     Dates: start: 201602

REACTIONS (1)
  - Suicidal ideation [Recovered/Resolved]

NARRATIVE: CASE EVENT DATE: 20220502
